FAERS Safety Report 7506381-4 (Version None)
Quarter: 2011Q2

REPORT INFORMATION
  Report Type: 
  Country: None (occurrence: None)
  Receive Date: 20110526
  Receipt Date: 20110520
  Transmission Date: 20111010
  Serious: Yes (Death)
  Sender: FDA-Public Use
  Company Number: US-AMGEN-USASP2011023635

PATIENT
  Age: 65 Year
  Sex: Female
  Weight: 70 kg

DRUGS (2)
  1. NPLATE [Suspect]
     Indication: IDIOPATHIC THROMBOCYTOPENIC PURPURA
     Dosage: 100 A?G, QWK
     Dates: start: 20101231, end: 20110114
  2. RITUXIMAB [Concomitant]

REACTIONS (2)
  - HEAD AND NECK CANCER [None]
  - SQUAMOUS CELL CARCINOMA [None]
